FAERS Safety Report 22519250 (Version 2)
Quarter: 2023Q2

REPORT INFORMATION
  Report Type: Report from Study
  Country: US (occurrence: US)
  Receive Date: 20230605
  Receipt Date: 20230621
  Transmission Date: 20230722
  Serious: Yes (Hospitalization)
  Sender: FDA-Public Use
  Company Number: US-Merck Healthcare KGaA-9406410

PATIENT
  Sex: Female

DRUGS (3)
  1. MAVENCLAD [Suspect]
     Active Substance: CLADRIBINE
     Indication: Multiple sclerosis
     Dosage: YEAR ONE MONTH ONE THERAPY: TWO TABLETS ON DAYS 1 TO 5
     Route: 048
     Dates: start: 20220902, end: 20220906
  2. MAVENCLAD [Suspect]
     Active Substance: CLADRIBINE
     Dosage: YEAR ONE MONTH TWO THERAPY: TWO TABLETS FROM DAY 1 TO 4 AND ONE TABLET ON DAY 5
     Route: 048
     Dates: start: 20220929, end: 20221003
  3. ELIQUIS [Concomitant]
     Active Substance: APIXABAN
     Indication: Thrombosis
     Dosage: 5 AM AND 5 PM DAILY.

REACTIONS (3)
  - Bradycardia [Unknown]
  - Nasopharyngitis [Unknown]
  - Fatigue [Unknown]
